FAERS Safety Report 23754748 (Version 3)
Quarter: 2024Q3

REPORT INFORMATION
  Report Type: Report from Study
  Country: US (occurrence: US)
  Receive Date: 20240418
  Receipt Date: 20240806
  Transmission Date: 20241017
  Serious: Yes (Hospitalization)
  Sender: ROCHE
  Company Number: US-ROCHE-3544192

PATIENT
  Age: 82 Year
  Sex: Female

DRUGS (48)
  1. PULMOZYME [Suspect]
     Active Substance: DORNASE ALFA
     Indication: Bronchiectasis
     Dosage: NEBULIZE THE CONTENTS OF 1 VIAL(S) ONCE DAILY
     Route: 065
  2. PULMOZYME [Suspect]
     Active Substance: DORNASE ALFA
     Indication: Bacterial infection
  3. ACETAMINOPHEN [Concomitant]
     Active Substance: ACETAMINOPHEN
  4. ASPIRIN [Concomitant]
     Active Substance: ASPIRIN
  5. OXYTETRACYCLINE [Concomitant]
     Active Substance: OXYTETRACYCLINE
  6. SALICYLATES NOS [Concomitant]
     Active Substance: UNSPECIFIED INGREDIENT
  7. THEOPHYLLINE [Concomitant]
     Active Substance: THEOPHYLLINE
  8. TOBRAMYCIN [Concomitant]
     Active Substance: TOBRAMYCIN\TOBRAMYCIN SULFATE
  9. EPINEPHRINE [Concomitant]
     Active Substance: EPINEPHRINE
  10. AMINOPHYLLINE [Concomitant]
     Active Substance: AMINOPHYLLINE
  11. CECLOR [Concomitant]
     Active Substance: CEFACLOR
  12. DEMEROL [Concomitant]
     Active Substance: MEPERIDINE HYDROCHLORIDE
  13. DILTIAZEM HYDROCHLORIDE [Concomitant]
     Active Substance: DILTIAZEM HYDROCHLORIDE
  14. HYDRALAZINE [Concomitant]
     Active Substance: HYDRALAZINE HYDROCHLORIDE
  15. IBUPROFEN [Concomitant]
     Active Substance: IBUPROFEN
  16. IODIDES TINCT [Concomitant]
  17. IODINE [Concomitant]
     Active Substance: IODINE
  18. MEPERIDINE [Concomitant]
     Active Substance: MEPERIDINE
  19. POTASSIUM IODIDE [Concomitant]
     Active Substance: POTASSIUM IODIDE
  20. PSEUDOEPHEDRINE [Concomitant]
     Active Substance: PSEUDOEPHEDRINE
  21. SODIUM IODIDE [Concomitant]
     Active Substance: SODIUM IODIDE
  22. ALBUTEROL SULFATE [Concomitant]
     Active Substance: ALBUTEROL SULFATE
  23. AMLODIPINE [Concomitant]
     Active Substance: AMLODIPINE BESYLATE
  24. ZYRTEC [Concomitant]
     Active Substance: CETIRIZINE HYDROCHLORIDE
     Route: 048
  25. PLAVIX [Concomitant]
     Active Substance: CLOPIDOGREL BISULFATE
     Route: 048
  26. CATAPRES [Concomitant]
     Active Substance: CLONIDINE HYDROCHLORIDE
     Route: 048
  27. EPIPEN [Concomitant]
     Active Substance: EPINEPHRINE
     Dosage: 03 MG/0/3 ML
     Route: 030
  28. DRISDOL [Concomitant]
     Active Substance: ERGOCALCIFEROL
     Route: 048
  29. ADVAIR HFA [Concomitant]
     Active Substance: FLUTICASONE PROPIONATE\SALMETEROL XINAFOATE
  30. TRELEGY ELLIPTA [Concomitant]
     Active Substance: FLUTICASONE FUROATE\UMECLIDINIUM BROMIDE\VILANTEROL TRIFENATATE
     Dosage: 1 PUFF EVERY EVENING
  31. FOLIC ACID [Concomitant]
     Active Substance: FOLIC ACID
     Route: 048
  32. LASIX [Concomitant]
     Active Substance: FUROSEMIDE
     Route: 048
  33. MUCINEX [Concomitant]
     Active Substance: GUAIFENESIN
     Route: 048
  34. ATROVENT HFA [Concomitant]
     Active Substance: IPRATROPIUM BROMIDE
  35. DUONEB [Concomitant]
     Active Substance: ALBUTEROL SULFATE\IPRATROPIUM BROMIDE
  36. SYNTHROID [Concomitant]
     Active Substance: LEVOTHYROXINE SODIUM
     Dosage: 175 MG
  37. ATIVAN [Concomitant]
     Active Substance: LORAZEPAM
  38. COZAAR [Concomitant]
     Active Substance: LOSARTAN POTASSIUM
     Dosage: 50MG
  39. REGLAN [Concomitant]
     Active Substance: METOCLOPRAMIDE HYDROCHLORIDE
     Route: 048
  40. SINGULAIR [Concomitant]
     Active Substance: MONTELUKAST SODIUM
  41. NITROGLYCERIN [Concomitant]
     Active Substance: NITROGLYCERIN
  42. ZOFRAN [Concomitant]
     Active Substance: ONDANSETRON HYDROCHLORIDE
     Dosage: 4 MG
     Route: 042
  43. OMEPRAZOLE [Concomitant]
     Active Substance: OMEPRAZOLE
     Route: 048
  44. PRAVACHOL [Concomitant]
     Active Substance: PRAVASTATIN SODIUM
  45. DEXAMETHASONE [Concomitant]
     Active Substance: DEXAMETHASONE
  46. CRESTOR [Concomitant]
     Active Substance: ROSUVASTATIN CALCIUM
     Route: 048
  47. ZOCOR [Concomitant]
     Active Substance: SIMVASTATIN
     Route: 048
  48. RECLAST [Concomitant]
     Active Substance: ZOLEDRONIC ACID

REACTIONS (2)
  - Pneumonia [Unknown]
  - Off label use [Unknown]
